FAERS Safety Report 24334125 (Version 2)
Quarter: 2024Q4

REPORT INFORMATION
  Report Type: Spontaneous
  Country: FR (occurrence: FR)
  Receive Date: 20240918
  Receipt Date: 20241022
  Transmission Date: 20250114
  Serious: Yes (Hospitalization, Other)
  Sender: FRESENIUS KABI
  Company Number: None

PATIENT
  Age: 29 Year
  Sex: Female
  Weight: 79 kg

DRUGS (21)
  1. ACETAMINOPHEN [Suspect]
     Active Substance: ACETAMINOPHEN
     Indication: Anaesthesia
     Dosage: UNK?FORM OF ADMIN: TABLET
     Dates: start: 20240419, end: 20240419
  2. ACETAMINOPHEN [Suspect]
     Active Substance: ACETAMINOPHEN
     Dosage: ROUTE: INTRAVENOUS
     Dates: end: 20240419
  3. PROPOFOL [Suspect]
     Active Substance: PROPOFOL
     Indication: Anaesthesia
     Dosage: UNK?FORM OF ADMIN: EMULSION FOR INJECTION
     Route: 042
     Dates: start: 20240419, end: 20240419
  4. PROPOFOL [Suspect]
     Active Substance: PROPOFOL
     Dosage: ROUTE: INTRAVENOUS
     Dates: end: 20240419
  5. MIDAZOLAM [Suspect]
     Active Substance: MIDAZOLAM
     Indication: Anaesthesia
     Dosage: UNK
  6. MIDAZOLAM [Suspect]
     Active Substance: MIDAZOLAM
     Dosage: ROUTE: INTRAVENOUS
     Dates: end: 20240419
  7. ATRACURIUM [Suspect]
     Active Substance: ATRACURIUM
     Indication: Anaesthesia
     Dosage: ROUTE: INTRAVENOUS
     Dates: end: 20240419
  8. ATRACURIUM [Suspect]
     Active Substance: ATRACURIUM
     Dosage: UNK
     Route: 042
     Dates: end: 20240419
  9. DEXAMETHASONE [Suspect]
     Active Substance: DEXAMETHASONE
     Indication: Anaesthesia
     Dosage: UNK?FORM: SOLUTION FOR INFUSION
     Dates: start: 20240419, end: 20240419
  10. DEXAMETHASONE [Suspect]
     Active Substance: DEXAMETHASONE
     Dosage: ROUTE: INTRAVENOUS
     Dates: end: 20240419
  11. KETAMINE [Suspect]
     Active Substance: KETAMINE
     Indication: Anaesthesia
     Dosage: UNK?FORM: INFUSION
     Route: 042
     Dates: start: 20240419, end: 20240419
  12. KETAMINE [Suspect]
     Active Substance: KETAMINE
     Dosage: ROUTE: INTRAVENOUS
     Dates: end: 20240419
  13. ROPIVACAINE HYDROCHLORIDE [Suspect]
     Active Substance: ROPIVACAINE HYDROCHLORIDE
     Indication: Anaesthesia
     Dosage: ROUTE: PARENTERAL
  14. CEFAZOLIN SODIUM [Suspect]
     Active Substance: CEFAZOLIN SODIUM
     Indication: Antibiotic prophylaxis
     Dosage: UNK
     Route: 042
     Dates: start: 20240419, end: 20240419
  15. EPINEPHRINE\LIDOCAINE [Suspect]
     Active Substance: EPINEPHRINE\LIDOCAINE
     Indication: Anaesthesia
     Dosage: UNK?FORM: SOLUTION FOR INJECTION
     Route: 051
     Dates: start: 20240419, end: 20240419
  16. EPINEPHRINE\LIDOCAINE [Suspect]
     Active Substance: EPINEPHRINE\LIDOCAINE
     Dosage: ROUTE: PARENTERAL
  17. NEFOPAM [Suspect]
     Active Substance: NEFOPAM
     Indication: Anaesthesia
     Dosage: UNK
     Route: 042
     Dates: start: 20240419, end: 20240419
  18. NEFOPAM [Suspect]
     Active Substance: NEFOPAM
     Dosage: ROUTE: INTRAVENOUS
  19. SUFENTANIL [Concomitant]
     Active Substance: SUFENTANIL
     Indication: Anaesthesia
     Dosage: UNK
     Route: 042
     Dates: start: 20240419, end: 20240419
  20. SUFENTANIL [Concomitant]
     Active Substance: SUFENTANIL
     Dosage: ROUTE: INTRAVENOUS
  21. SODIUM CHLORIDE [Concomitant]
     Active Substance: SODIUM CHLORIDE
     Indication: Product used for unknown indication
     Dosage: UNK
     Route: 042
     Dates: start: 20240419, end: 20240419

REACTIONS (1)
  - Anaphylactic reaction [Recovered/Resolved]

NARRATIVE: CASE EVENT DATE: 20240419
